FAERS Safety Report 8570102-7 (Version None)
Quarter: 2012Q3

REPORT INFORMATION
  Report Type: 
  Country: None (occurrence: None)
  Receive Date: 20120803
  Receipt Date: 20120726
  Transmission Date: 20120928
  Serious: Yes (Hospitalization, Other)
  Sender: FDA-Public Use
  Company Number: US-ABBOTT-12P-163-0956576-00

PATIENT
  Sex: Female
  Weight: 136.2 kg

DRUGS (8)
  1. EFFEXOR [Concomitant]
     Indication: DEPRESSION
  2. METHAZINE [Concomitant]
     Indication: HYPERTHYROIDISM
  3. MORPHINE SULFATE [Concomitant]
     Indication: RHEUMATOID ARTHRITIS
  4. HUMIRA [Suspect]
     Indication: RHEUMATOID ARTHRITIS
     Dates: start: 20110501
  5. HYDROCHLORAQUINE [Concomitant]
     Indication: RHEUMATOID ARTHRITIS
  6. PERCOCET [Concomitant]
     Indication: RHEUMATOID ARTHRITIS
  7. CELEXA [Concomitant]
     Indication: DEPRESSION
  8. FOLIC ACID [Concomitant]
     Indication: VITAMIN SUPPLEMENTATION

REACTIONS (6)
  - BREAST MASS [None]
  - CELLULITIS [None]
  - BREAST CELLULITIS [None]
  - HEPATIC MASS [None]
  - RASH [None]
  - ARTHROPOD BITE [None]
